FAERS Safety Report 4729954-0 (Version None)
Quarter: 2005Q3

REPORT INFORMATION
  Report Type: 
  Country: None (occurrence: None)
  Receive Date: 20050728
  Receipt Date: 20050721
  Transmission Date: 20060218
  Serious: Yes (Other)
  Sender: FDA-Public Use
  Company Number: 2005BI011432

PATIENT
  Age: 58 Year
  Sex: Female

DRUGS (9)
  1. AVONEX [Suspect]
     Indication: MULTIPLE SCLEROSIS
     Dosage: 30 UG; QW; IM
     Route: 030
     Dates: start: 19990505
  2. AVONEX [Suspect]
     Indication: MULTIPLE SCLEROSIS
     Dosage: 30 UG; QW; IM
     Route: 030
  3. NATALIZUMAB [Suspect]
     Indication: MULTIPLE SCLEROSIS
     Dosage: 300 MG; QW; IV
     Route: 042
     Dates: start: 20050107, end: 20050208
  4. PROVIGIL [Concomitant]
  5. DETROL [Concomitant]
  6. AMBIEN [Concomitant]
  7. PROMETRIUM [Concomitant]
  8. VYTORIN [Concomitant]
  9. DURAGESIC-100 [Concomitant]

REACTIONS (16)
  - ANAPHYLACTIC REACTION [None]
  - CHEST DISCOMFORT [None]
  - DEPRESSION [None]
  - DIFFICULTY IN WALKING [None]
  - ERYTHEMA [None]
  - FATIGUE [None]
  - FEELING ABNORMAL [None]
  - HANGOVER [None]
  - HEADACHE [None]
  - MALAISE [None]
  - MOOD ALTERED [None]
  - OEDEMA PERIPHERAL [None]
  - SEXUAL DYSFUNCTION [None]
  - SHOCK [None]
  - URINARY TRACT INFECTION [None]
  - URTICARIA [None]
